FAERS Safety Report 5844706-6 (Version None)
Quarter: 2008Q3

REPORT INFORMATION
  Report Type: 
  Country: None (occurrence: None)
  Receive Date: 20080812
  Receipt Date: 20080729
  Transmission Date: 20090109
  Serious: Yes (Hospitalization, Other)
  Sender: FDA-Public Use
  Company Number: 2007VX002606

PATIENT
  Age: 74 Year
  Sex: Female

DRUGS (7)
  1. PERMAX [Suspect]
     Indication: PARKINSON'S DISEASE
     Dosage: ; PO, 1500 UG; QD; PO, 1250 UG; QD; PO, 1000 UG; QD; PO
     Route: 048
     Dates: start: 20040101, end: 20050101
  2. PERMAX [Suspect]
     Indication: PARKINSON'S DISEASE
     Dosage: ; PO, 1500 UG; QD; PO, 1250 UG; QD; PO, 1000 UG; QD; PO
     Route: 048
     Dates: end: 20070601
  3. PERMAX [Suspect]
     Indication: PARKINSON'S DISEASE
     Dosage: ; PO, 1500 UG; QD; PO, 1250 UG; QD; PO, 1000 UG; QD; PO
     Route: 048
     Dates: start: 20050101
  4. PERMAX [Suspect]
     Indication: PARKINSON'S DISEASE
     Dosage: ; PO, 1500 UG; QD; PO, 1250 UG; QD; PO, 1000 UG; QD; PO
     Route: 048
     Dates: start: 20070601
  5. LEVODOPA BENSERAZIDE HYDROCHLO [Concomitant]
  6. SIFROL [Concomitant]
  7. SYMMETREL [Concomitant]

REACTIONS (3)
  - AKINESIA [None]
  - CARDIAC ANEURYSM [None]
  - CARDIAC VALVE DISEASE [None]
